FAERS Safety Report 5234830-3 (Version None)
Quarter: 2007Q1

REPORT INFORMATION
  Report Type: 
  Country: None (occurrence: None)
  Receive Date: 20070209
  Receipt Date: 20070130
  Transmission Date: 20070707
  Serious: Yes (Hospitalization, Other)
  Sender: FDA-Public Use
  Company Number: DE-PFIZER INC-2007004558

PATIENT
  Sex: Female
  Weight: 66 kg

DRUGS (6)
  1. LYRICA [Suspect]
     Indication: DIABETIC NEUROPATHY
     Route: 048
     Dates: start: 20060101, end: 20070101
  2. INSULIN [Concomitant]
  3. OMEPRAZOLE [Concomitant]
     Dosage: DAILY DOSE:40MG
  4. LEVOTHYROXINE SODIUM [Concomitant]
     Dosage: DAILY DOSE:50MG
  5. KATADOLON [Concomitant]
  6. NOVORAPID [Concomitant]

REACTIONS (2)
  - DYSPHEMIA [None]
  - MUSCULAR WEAKNESS [None]
